FAERS Safety Report 25429830 (Version 1)
Quarter: 2025Q2

REPORT INFORMATION
  Report Type: Spontaneous
  Country: GB (occurrence: GB)
  Receive Date: 20250612
  Receipt Date: 20250612
  Transmission Date: 20250716
  Serious: Yes (Death, Other)
  Sender: TEVA
  Company Number: None

PATIENT
  Age: 34 Year
  Sex: Female

DRUGS (1)
  1. PROPRANOLOL [Suspect]
     Active Substance: PROPRANOLOL HYDROCHLORIDE
     Indication: Product used for unknown indication
     Route: 065

REACTIONS (3)
  - Hypoxic-ischaemic encephalopathy [Fatal]
  - Overdose [Not Recovered/Not Resolved]
  - Cardiac arrest [Not Recovered/Not Resolved]
